FAERS Safety Report 9527762 (Version 1)
Quarter: 2013Q1

REPORT INFORMATION
  Report Type: Spontaneous
  Country: US (occurrence: None)
  Receive Date: 20130314
  Receipt Date: 20130314
  Transmission Date: 20140127
  Serious: No
  Sender: FDA-Public Use
  Company Number: 1211USA007953

PATIENT
  Age: 51 Year
  Sex: Female

DRUGS (2)
  1. VICTRELIS (BOCEPREVIR) CAPSULE, 200MG [Suspect]
     Indication: HEPATITIS C
     Dosage: 800 MG, TID, ORAL
     Route: 048
     Dates: end: 2012
  2. PEGASYS (PEGINTERFERON ALFA-2B) [Suspect]
     Indication: HEPATITIS C
     Dosage: UNK

REACTIONS (3)
  - Skin wrinkling [None]
  - Dry skin [None]
  - Skin atrophy [None]
